FAERS Safety Report 6467245-0 (Version None)
Quarter: 2009Q4

REPORT INFORMATION
  Report Type: 
  Country: None (occurrence: None)
  Receive Date: 20091127
  Receipt Date: 20091116
  Transmission Date: 20100525
  Serious: Yes (Hospitalization)
  Sender: FDA-Public Use
  Company Number: MC200900407

PATIENT
  Age: 66 Year
  Sex: Male
  Weight: 80 kg

DRUGS (19)
  1. ANGIOMAX [Suspect]
     Dosage: 12 ML BOLUS, IV BOLUS
     Route: 040
     Dates: start: 20090906, end: 20090906
  2. ANGIOMAX [Suspect]
     Dosage: 28 ML, HR, INTRAVENOUS 4 ML, HR, INTRAVENOUS
     Route: 042
     Dates: start: 20090906, end: 20090906
  3. RAMIPRIL [Concomitant]
  4. RAMIPRIL [Concomitant]
  5. SIMVASTATIN [Concomitant]
  6. DIGITOXIN INJ [Concomitant]
  7. EBRANTIL (URAPIDIL) [Concomitant]
  8. ENOXAPARIN SODIUM [Concomitant]
  9. METOPROLOL (METOPROLOL) [Concomitant]
  10. EPLERENONE (EPLERENONE) [Concomitant]
  11. AMIODARON (AMIODARONE HYDROCHLORIDE) [Concomitant]
  12. BISOPROLOL (BISOPROLOL HEMIFUMARATE) [Concomitant]
  13. MOXONIDIN (MOXONIDINE) [Concomitant]
  14. LERSADIPIN (LERCANIDIPINE) [Concomitant]
  15. CLOPIDOGREL [Concomitant]
  16. ASPIRIN [Concomitant]
  17. TORSEMIDE [Concomitant]
  18. MIDAZOLAM HCL [Concomitant]
  19. ETOMIDATE [Concomitant]

REACTIONS (1)
  - VASCULAR PSEUDOANEURYSM [None]
